FAERS Safety Report 7919868-7 (Version None)
Quarter: 2011Q4

REPORT INFORMATION
  Report Type: 
  Country: None (occurrence: None)
  Receive Date: 20111115
  Receipt Date: 20111031
  Transmission Date: 20120403
  Serious: Yes (Other)
  Sender: FDA-Public Use
  Company Number: FK201102559

PATIENT
  Age: 14 Year
  Sex: Female
  Weight: 58.5 kg

DRUGS (2)
  1. PREDNISOLONE [Concomitant]
  2. METHYLPREDNISOLONE [Suspect]
     Indication: DRUG THERAPY
     Dosage: 10 MG/KG, X 3 DAYS, INTRAVENOUS
     Route: 042

REACTIONS (1)
  - TUBULOINTERSTITIAL NEPHRITIS AND UVEITIS SYNDROME [None]
